FAERS Safety Report 6543685-6 (Version None)
Quarter: 2010Q1

REPORT INFORMATION
  Report Type: 
  Country: None (occurrence: None)
  Receive Date: 20100120
  Receipt Date: 20100115
  Transmission Date: 20100710
  Serious: Yes (Hospitalization)
  Sender: FDA-Public Use
  Company Number: GXBR2010US00486

PATIENT
  Sex: Female
  Weight: 86.168 kg

DRUGS (6)
  1. CHLORPROMAZINE HCL TABLETS USP (NGX) [Suspect]
     Indication: SCHIZOPHRENIA
     Dosage: 100 MG, TID
     Route: 048
     Dates: start: 20091124
  2. PROZAC [Concomitant]
  3. COGENTIN [Concomitant]
  4. DEPAKOTE [Concomitant]
  5. AMBIEN [Concomitant]
  6. INDERAL [Concomitant]

REACTIONS (4)
  - AGGRESSION [None]
  - BLOOD CREATININE INCREASED [None]
  - DEPRESSION [None]
  - DRUG SCREEN POSITIVE [None]
